FAERS Safety Report 6880160-3 (Version None)
Quarter: 2010Q3

REPORT INFORMATION
  Report Type: 
  Country: None (occurrence: None)
  Receive Date: 20100728
  Receipt Date: 20100325
  Transmission Date: 20110219
  Serious: Yes (Other)
  Sender: FDA-Public Use
  Company Number: US-BRISTOL-MYERS SQUIBB COMPANY-15002868

PATIENT
  Age: 75 Year
  Sex: Male
  Weight: 124 kg

DRUGS (12)
  1. SPRYCEL [Suspect]
     Indication: CHRONIC MYELOID LEUKAEMIA
     Route: 048
     Dates: start: 20091012, end: 20100224
  2. COUMADIN [Concomitant]
  3. COMBIVENT [Concomitant]
  4. IRON TABLETS [Concomitant]
  5. LASIX [Concomitant]
  6. MAGNESIUM [Concomitant]
  7. POTASSIUM [Concomitant]
  8. NITROGLYCERIN [Concomitant]
  9. ALLOPURINOL [Concomitant]
  10. ACETAMINOPHEN [Concomitant]
  11. MULTI-VITAMIN [Concomitant]
  12. B COMPLEX 100 [Concomitant]

REACTIONS (1)
  - ELECTROCARDIOGRAM QT PROLONGED [None]
